FAERS Safety Report 13270281 (Version 1)
Quarter: 2017Q1

REPORT INFORMATION
  Report Type: Spontaneous
  Country: JP (occurrence: JP)
  Receive Date: 20170224
  Receipt Date: 20170224
  Transmission Date: 20170428
  Serious: Yes (Hospitalization)
  Sender: FDA-Public Use
  Company Number: JP-B.I. PHARMACEUTICALS,INC./RIDGEFIELD-2017-NB-000664

PATIENT
  Age: 63 Year
  Sex: Female

DRUGS (6)
  1. MICARDIS [Suspect]
     Active Substance: TELMISARTAN
     Indication: HYPERTENSION
     Route: 065
     Dates: start: 20110318, end: 20130121
  2. MICARDIS [Suspect]
     Active Substance: TELMISARTAN
     Route: 065
     Dates: start: 20150415, end: 20151015
  3. MICOMBI COMBINATION [Suspect]
     Active Substance: HYDROCHLOROTHIAZIDE\TELMISARTAN
     Route: 065
     Dates: start: 20141114, end: 20150414
  4. MICOMBI COMBINATION [Suspect]
     Active Substance: HYDROCHLOROTHIAZIDE\TELMISARTAN
     Indication: HYPERTENSION
     Route: 065
     Dates: start: 20130122, end: 20130509
  5. MICARDIS [Suspect]
     Active Substance: TELMISARTAN
     Route: 065
     Dates: start: 20130510, end: 20141113
  6. MICOMBI COMBINATION [Suspect]
     Active Substance: HYDROCHLOROTHIAZIDE\TELMISARTAN
     Route: 065
     Dates: start: 20151016, end: 20160313

REACTIONS (3)
  - Enterocolitis viral [Recovered/Resolved]
  - Drug-induced liver injury [Recovered/Resolved]
  - Enterocolitis viral [Recovered/Resolved]

NARRATIVE: CASE EVENT DATE: 20110331
